FAERS Safety Report 19122836 (Version 2)
Quarter: 2021Q2

REPORT INFORMATION
  Report Type: Report from Study
  Country: CN (occurrence: CN)
  Receive Date: 20210412
  Receipt Date: 20210413
  Transmission Date: 20210717
  Serious: Yes (Other)
  Sender: FDA-Public Use
  Company Number: CN-B.I. PHARMACEUTICALS,INC./RIDGEFIELD-2021-BI-094682

PATIENT

DRUGS (4)
  1. TICAGRELOR. [Concomitant]
     Active Substance: TICAGRELOR
     Indication: ATRIAL FIBRILLATION
     Route: 048
  2. PRADAXA [Suspect]
     Active Substance: DABIGATRAN ETEXILATE MESYLATE
     Indication: ATRIAL FIBRILLATION
     Route: 048
  3. TICAGRELOR. [Concomitant]
     Active Substance: TICAGRELOR
     Indication: ANGINA UNSTABLE
  4. PRADAXA [Suspect]
     Active Substance: DABIGATRAN ETEXILATE MESYLATE
     Indication: ANGINA UNSTABLE

REACTIONS (1)
  - Ischaemic stroke [Unknown]
